FAERS Safety Report 5895138-6 (Version None)
Quarter: 2008Q3

REPORT INFORMATION
  Report Type: 
  Country: None (occurrence: None)
  Receive Date: 20080924
  Receipt Date: 20080911
  Transmission Date: 20090109
  Serious: No
  Sender: FDA-Public Use
  Company Number: US-ELI_LILLY_AND_COMPANY-US200809002623

PATIENT
  Age: 26 Year
  Sex: Male

DRUGS (8)
  1. CYMBALTA [Suspect]
     Indication: DYSTHYMIC DISORDER
     Dosage: 20 MG, DAILY (1/D)
  2. DIVALPROEX SODIUM [Concomitant]
  3. DEPO-TESTOSTERONE [Concomitant]
  4. DOCUSATE SODIUM [Concomitant]
  5. CALCITONIN [Concomitant]
     Route: 045
  6. LACTULOSE [Concomitant]
  7. LEVOTHYROXINE SODIUM [Concomitant]
  8. LORAZEPAM [Concomitant]

REACTIONS (7)
  - ALANINE AMINOTRANSFERASE INCREASED [None]
  - ASPARTATE AMINOTRANSFERASE INCREASED [None]
  - BLOOD GLUCOSE INCREASED [None]
  - BLOOD PRESSURE INCREASED [None]
  - CARBON DIOXIDE DECREASED [None]
  - HAEMOGLOBIN INCREASED [None]
  - TACHYCARDIA [None]
